FAERS Safety Report 8056928-7 (Version None)
Quarter: 2012Q1

REPORT INFORMATION
  Report Type: 
  Country: None (occurrence: None)
  Receive Date: 20120119
  Receipt Date: 20120118
  Transmission Date: 20120608
  Serious: Yes (Death, Hospitalization)
  Sender: FDA-Public Use
  Company Number: US-ROXANE LABORATORIES, INC.-2012-RO-00499RO

PATIENT
  Sex: Female

DRUGS (20)
  1. ACYCLOVIR [Concomitant]
     Dosage: 400 MG
     Route: 048
  2. CLONIDINE [Concomitant]
     Route: 048
  3. MORPHINE [Concomitant]
     Indication: PAIN
     Route: 048
  4. LANSOPRAZOLE [Concomitant]
     Dosage: 30 MG
     Route: 048
  5. FILGRASTIM [Concomitant]
     Indication: PROPHYLAXIS
     Route: 058
     Dates: start: 20111202
  6. DILTIAZEM HCL [Concomitant]
     Dosage: 240 MG
     Route: 048
  7. ACETYLSALICYLIC ACID SRT [Concomitant]
     Dosage: 81 MG
     Route: 048
  8. POTASSIUM CHLORIDE [Concomitant]
     Dosage: 40 MEQ
     Route: 048
  9. DEXAMETHASONE TAB [Suspect]
     Indication: MULTIPLE MYELOMA
     Route: 048
     Dates: start: 20111201, end: 20111216
  10. SULFAMETHOXAZOLE AND TRIMETHOPRIM [Concomitant]
     Route: 048
  11. ARRY-520 [Suspect]
     Indication: MULTIPLE MYELOMA
     Route: 042
     Dates: start: 20111130, end: 20111215
  12. ONDANSETRON [Concomitant]
     Indication: NAUSEA
     Route: 048
  13. SIMVASTATIN [Concomitant]
     Dosage: 40 MG
     Route: 048
  14. MORPHINE [Concomitant]
     Route: 048
  15. DIETARY SUPPLEMENT [Concomitant]
     Route: 048
  16. ONDANSETRON [Concomitant]
     Dosage: 4 MG
     Route: 042
     Dates: start: 20111219, end: 20111219
  17. MORPHINE [Concomitant]
     Route: 048
  18. GABAPENTIN [Concomitant]
     Dosage: 600 MG
     Route: 048
  19. CLOTRIMAZOLE [Concomitant]
     Route: 061
  20. MORPHINE [Concomitant]
     Dosage: 4 MG
     Route: 042
     Dates: start: 20111219, end: 20111219

REACTIONS (3)
  - PULSELESS ELECTRICAL ACTIVITY [None]
  - SEPSIS [None]
  - DIABETIC KETOACIDOSIS [None]
